FAERS Safety Report 21118973 (Version 1)
Quarter: 2022Q3

REPORT INFORMATION
  Report Type: Spontaneous
  Country: AT (occurrence: AT)
  Receive Date: 20220722
  Receipt Date: 20220722
  Transmission Date: 20221027
  Serious: Yes (Hospitalization, Other)
  Sender: FDA-Public Use
  Company Number: AT-BION-010853

PATIENT
  Age: 17 Year
  Sex: Male

DRUGS (1)
  1. AZITHROMYCIN [Suspect]
     Active Substance: AZITHROMYCIN
     Indication: Febrile infection
     Dosage: TAKEN 2 DOSAGES OF AZITHROMYCIN (7 DAYS AND 6 DAYS PRIOR TO ADMISSION)

REACTIONS (2)
  - Rhabdomyolysis [Unknown]
  - Product use in unapproved indication [Not Recovered/Not Resolved]
